FAERS Safety Report 20590485 (Version 1)
Quarter: 2022Q1

REPORT INFORMATION
  Report Type: Spontaneous
  Country: CN (occurrence: CN)
  Receive Date: 20220314
  Receipt Date: 20220314
  Transmission Date: 20220423
  Serious: Yes (Other)
  Sender: FDA-Public Use
  Company Number: CN-NAPPMUNDI-GBR-2022-0095739

PATIENT
  Age: 89 Year
  Sex: Male
  Weight: 60 kg

DRUGS (3)
  1. MORPHINE SULFATE [Suspect]
     Active Substance: MORPHINE SULFATE
     Indication: Cancer pain
     Dosage: 10 MG, Q12H
     Route: 048
     Dates: start: 20220218, end: 20220221
  2. ESTAZOLAM [Suspect]
     Active Substance: ESTAZOLAM
     Indication: Sleep disorder
     Dosage: 1 MG, DAILY
     Route: 048
     Dates: start: 20220215, end: 20220221
  3. CELECOXIB [Concomitant]
     Active Substance: CELECOXIB
     Indication: Analgesic therapy
     Dosage: UNK
     Dates: end: 20220218

REACTIONS (2)
  - Disorganised speech [Recovering/Resolving]
  - Somnolence [Recovering/Resolving]

NARRATIVE: CASE EVENT DATE: 20220221
